FAERS Safety Report 17983779 (Version 1)
Quarter: 2020Q3

REPORT INFORMATION
  Report Type: Spontaneous
  Country: NL (occurrence: NL)
  Receive Date: 20200706
  Receipt Date: 20200706
  Transmission Date: 20201103
  Serious: Yes (Other)
  Sender: FDA-Public Use
  Company Number: NL-TEVA-2020-NL-1795547

PATIENT
  Age: 56 Year
  Sex: Female
  Weight: 90 kg

DRUGS (3)
  1. ATORVASTATINE TABLET, 40 MG (MILLIGRAM) [Suspect]
     Active Substance: ATORVASTATIN
     Indication: HYPERCHOLESTEROLAEMIA
     Dosage: 40 MILLIGRAM DAILY; THERAPY  END DATE : ASKED BUT UNKNOWN
     Route: 065
     Dates: start: 20170302
  2. Q10  ? 100MG [Concomitant]
     Dosage: THERAPY START DATE AND END DATE : ASKED BUT UNKNOWN
  3. IRBESARTAN150 MG [Concomitant]
     Dosage: THERAPY START DATE AND END DATE : ASKED BUT UNKNOWN

REACTIONS (4)
  - Paralysis [Recovered/Resolved]
  - Anxiety [Recovered/Resolved]
  - Muscle spasms [Recovered/Resolved]
  - Depressed mood [Recovered/Resolved]

NARRATIVE: CASE EVENT DATE: 20170308
